FAERS Safety Report 6464527-3 (Version None)
Quarter: 2009Q4

REPORT INFORMATION
  Report Type: 
  Country: None (occurrence: None)
  Receive Date: 20091201
  Receipt Date: 20091119
  Transmission Date: 20100525
  Serious: Yes (Other)
  Sender: FDA-Public Use
  Company Number: CN-PFIZER INC-2009300413

PATIENT
  Age: 68 Year
  Sex: Male

DRUGS (1)
  1. SULPERAZON [Suspect]
     Indication: ANTI-INFECTIVE THERAPY
     Route: 042

REACTIONS (2)
  - DIZZINESS [None]
  - MYOCARDIAL ISCHAEMIA [None]
